FAERS Safety Report 9831981 (Version 1)
Quarter: 2014Q1

REPORT INFORMATION
  Report Type: Spontaneous
  Country: US (occurrence: US)
  Receive Date: 20140121
  Receipt Date: 20140121
  Transmission Date: 20141002
  Serious: Yes (Other)
  Sender: FDA-Public Use
  Company Number: US-ASTRAZENECA-2014SE03120

PATIENT
  Age: 88 Year
  Sex: Male
  Weight: 45.8 kg

DRUGS (10)
  1. SEROQUEL [Suspect]
     Indication: AGITATION
     Route: 048
     Dates: start: 201312
  2. SEROQUEL [Suspect]
     Indication: AGITATION
     Route: 048
  3. SEROQUEL [Suspect]
     Indication: AGITATION
     Route: 048
     Dates: start: 201312
  4. SEROQUEL [Suspect]
     Indication: AGITATION
     Route: 048
  5. SEROQUEL [Suspect]
     Indication: AGITATION
     Route: 048
     Dates: start: 20131212, end: 20131223
  6. ATIVAN [Concomitant]
     Dosage: UNKNOWN UNK
  7. OTHER (UNSPECIFIED) [Concomitant]
     Indication: ANTICOAGULANT THERAPY
     Dosage: UNKNOWN UNK
  8. OTHER (UNSPECIFIED) [Concomitant]
     Indication: CARDIAC DISORDER
     Dosage: UNKNOWN UNK
  9. LASIX [Concomitant]
     Indication: PULMONARY OEDEMA
     Dosage: UNKNOWN UNK
  10. ASPIRIN [Concomitant]

REACTIONS (6)
  - Fall [Unknown]
  - Weight decreased [Unknown]
  - Dysstasia [Unknown]
  - Pneumonia [Unknown]
  - Dementia [Unknown]
  - Intentional drug misuse [Unknown]
